FAERS Safety Report 17468166 (Version 3)
Quarter: 2020Q2

REPORT INFORMATION
  Report Type: Report from Study
  Country: IT (occurrence: IT)
  Receive Date: 20200227
  Receipt Date: 20200514
  Transmission Date: 20200713
  Serious: Yes (Hospitalization)
  Sender: FDA-Public Use
  Company Number: IT-MYLANLABS-2020M1020833

PATIENT
  Age: 55 Year
  Sex: Female

DRUGS (2)
  1. BRUFEN 800 MG COMPRESSE RIVESTITE A RILASCIO PROLUNGATO [Suspect]
     Active Substance: IBUPROFEN
     Indication: PRODUCT USED FOR UNKNOWN INDICATION
     Dosage: 1600 MILLIGRAM, QD
     Route: 048
     Dates: start: 20191106, end: 20191206
  2. PARACETAMOL [Suspect]
     Active Substance: ACETAMINOPHEN
     Indication: PRODUCT USED FOR UNKNOWN INDICATION
     Dosage: 2 GRAM, QD
     Route: 048
     Dates: start: 20191106, end: 20191206

REACTIONS (5)
  - Overdose [Unknown]
  - Product administration error [Unknown]
  - Blood bilirubin increased [Unknown]
  - Transaminases increased [Unknown]
  - Medication error [Unknown]

NARRATIVE: CASE EVENT DATE: 20191206
